FAERS Safety Report 11185959 (Version 4)
Quarter: 2015Q3

REPORT INFORMATION
  Report Type: Report from Study
  Country: RU (occurrence: RU)
  Receive Date: 20150612
  Receipt Date: 20150812
  Transmission Date: 20151125
  Serious: Yes (Hospitalization, Other)
  Sender: FDA-Public Use
  Company Number: PHHY2015RU068197

PATIENT
  Age: 69 Year
  Sex: Female

DRUGS (1)
  1. ACLASTA [Suspect]
     Active Substance: ZOLEDRONIC ACID
     Indication: OSTEOPOROSIS
     Dosage: UNK
     Route: 065
     Dates: start: 2014

REACTIONS (4)
  - Hand fracture [Recovered/Resolved]
  - Accident at home [Not Recovered/Not Resolved]
  - Fracture pain [Unknown]
  - Fracture displacement [Recovering/Resolving]

NARRATIVE: CASE EVENT DATE: 20150601
